FAERS Safety Report 4612905-7 (Version None)
Quarter: 2005Q1

REPORT INFORMATION
  Report Type: 
  Country: None (occurrence: None)
  Receive Date: 20050318
  Receipt Date: 20050312
  Transmission Date: 20050727
  Serious: Yes (Other)
  Sender: FDA-Public Use
  Company Number: 10392

PATIENT
  Age: 26 Year
  Sex: Male

DRUGS (1)
  1. ACYCLOVIR [Suspect]
     Route: 042

REACTIONS (1)
  - CARDIAC ARREST [None]
